FAERS Safety Report 8415910-8 (Version None)
Quarter: 2012Q2

REPORT INFORMATION
  Report Type: 
  Country: None (occurrence: None)
  Receive Date: 20120606
  Receipt Date: 20120531
  Transmission Date: 20120825
  Serious: Yes (Hospitalization, Other)
  Sender: FDA-Public Use
  Company Number: BR-SANOFI-AVENTIS-2012SA039173

PATIENT
  Sex: Male
  Weight: 83 kg

DRUGS (10)
  1. LANTUS [Suspect]
     Indication: TYPE 2 DIABETES MELLITUS
     Dosage: IN THE MORNING AND AFTERNOON
     Route: 058
     Dates: start: 20110101
  2. SOLOSTAR [Suspect]
     Indication: DEVICE THERAPY
     Dates: start: 20110101
  3. AAS INFANTIL [Concomitant]
     Indication: ANTICOAGULANT THERAPY
     Dosage: AT LUNCH
  4. ATORVASTATIN CALCIUM [Concomitant]
     Dosage: AFTER DINNER
  5. CARVEDILOL [Concomitant]
     Dosage: MORNING AND NIGHT
  6. CLOPIDOGREL [Concomitant]
     Indication: ANTICOAGULANT THERAPY
     Dosage: AT LUNCH
  7. METFORMIN HCL [Concomitant]
     Indication: TYPE 2 DIABETES MELLITUS
     Dosage: MORNING AND NIGHT
  8. LOSARTAN POTASSIUM [Concomitant]
     Dosage: AT LUNCH
  9. DIAMICRON [Concomitant]
     Indication: TYPE 2 DIABETES MELLITUS
     Dosage: MORNING AND NIGHT
  10. OMEPRAZOLE [Concomitant]
     Indication: GASTRIC DISORDER
     Dosage: IN MORNING

REACTIONS (5)
  - FATIGUE [None]
  - INJECTION SITE PAIN [None]
  - CORONARY ARTERY OCCLUSION [None]
  - INJECTION SITE REACTION [None]
  - DRUG ADMINISTRATION ERROR [None]
